FAERS Safety Report 6160900-1 (Version None)
Quarter: 2009Q2

REPORT INFORMATION
  Report Type: 
  Country: None (occurrence: None)
  Receive Date: 20090417
  Receipt Date: 20090417
  Transmission Date: 20091009
  Serious: No
  Sender: FDA-Public Use
  Company Number: None

PATIENT
  Age: 32 Year
  Sex: Female
  Weight: 97.5234 kg

DRUGS (4)
  1. INFLIXIMUB 100MG CENTOCOR [Suspect]
     Indication: RHEUMATOID ARTHRITIS
     Dosage: 300MG AT WEEK 0; 2 + 6 IV DRIP
     Route: 041
     Dates: start: 20090223, end: 20090413
  2. BENADRYL [Concomitant]
  3. PEPCID [Concomitant]
  4. SODIUM CHLORIDE [Concomitant]

REACTIONS (3)
  - CHEST DISCOMFORT [None]
  - DYSPNOEA [None]
  - FLUSHING [None]
